FAERS Safety Report 15448891 (Version 1)
Quarter: 2018Q3

REPORT INFORMATION
  Report Type: Spontaneous
  Country: BE (occurrence: BE)
  Receive Date: 20180930
  Receipt Date: 20180930
  Transmission Date: 20181010
  Serious: Yes (Death, Hospitalization, Other)
  Sender: FDA-Public Use
  Company Number: BE-B.I. PHARMACEUTICALS,INC./RIDGEFIELD-2018-BI-047862

PATIENT
  Age: 92 Year
  Sex: Male

DRUGS (1)
  1. PRADAXA [Suspect]
     Active Substance: DABIGATRAN ETEXILATE MESYLATE
     Indication: ATRIAL FIBRILLATION
     Route: 065

REACTIONS (5)
  - Pyrexia [Fatal]
  - Sepsis [Fatal]
  - Suicide attempt [Unknown]
  - Pneumothorax [Unknown]
  - Traumatic haemothorax [Unknown]

NARRATIVE: CASE EVENT DATE: 20180810
